FAERS Safety Report 17837542 (Version 3)
Quarter: 2020Q4

REPORT INFORMATION
  Report Type: Spontaneous
  Country: US (occurrence: US)
  Receive Date: 20200528
  Receipt Date: 20201012
  Transmission Date: 20210113
  Serious: Yes (Life-Threatening)
  Sender: FDA-Public Use
  Company Number: US-009507513-2005USA007768

PATIENT
  Age: 65 Year
  Sex: Male

DRUGS (5)
  1. ZYRTEC [Suspect]
     Active Substance: CETIRIZINE HYDROCHLORIDE
     Indication: PREMEDICATION
     Dosage: 10 MILLIGRAM
     Route: 048
     Dates: start: 20200521
  2. ALOXI [Suspect]
     Active Substance: PALONOSETRON HYDROCHLORIDE
     Indication: PREMEDICATION
     Dosage: 0.25 MG
     Route: 042
     Dates: start: 20200521
  3. KEYTRUDA [Suspect]
     Active Substance: PEMBROLIZUMAB
     Indication: MALIGNANT MELANOMA
     Dosage: 200 MG EVERY 21 DAYS
     Route: 042
     Dates: start: 20190827
  4. DECADRON [Suspect]
     Active Substance: DEXAMETHASONE
     Indication: PREMEDICATION
     Dosage: 20 MILLIGRAM
     Route: 042
     Dates: start: 20200521
  5. FAMOTIDINE. [Suspect]
     Active Substance: FAMOTIDINE
     Dosage: 20 MILLIGRAM
     Route: 042

REACTIONS (6)
  - Nausea [Recovered/Resolved]
  - Product dose omission issue [Unknown]
  - Flushing [Recovered/Resolved]
  - Urticaria [Recovered/Resolved]
  - Adverse reaction [Recovered/Resolved]
  - Hypotension [Recovered/Resolved]

NARRATIVE: CASE EVENT DATE: 20200521
